FAERS Safety Report 19714591 (Version 1)
Quarter: 2021Q3

REPORT INFORMATION
  Report Type: Spontaneous
  Country: US (occurrence: US)
  Receive Date: 20210818
  Receipt Date: 20210818
  Transmission Date: 20211014
  Serious: No
  Sender: FDA-Public Use
  Company Number: None

PATIENT
  Age: 75 Year
  Sex: Male
  Weight: 67.05 kg

DRUGS (2)
  1. ERLEADA [Suspect]
     Active Substance: APALUTAMIDE
     Indication: PROSTATE CANCER
     Route: 048
     Dates: start: 20200714
  2. TYLENOL/CODEINE #3 [Concomitant]

REACTIONS (2)
  - Prostate cancer metastatic [None]
  - Metastases to liver [None]

NARRATIVE: CASE EVENT DATE: 20210818
